FAERS Safety Report 13477675 (Version 1)
Quarter: 2017Q2

REPORT INFORMATION
  Report Type: Spontaneous
  Country: US (occurrence: US)
  Receive Date: 20170425
  Receipt Date: 20170425
  Transmission Date: 20170830
  Serious: Yes (Hospitalization)
  Sender: FDA-Public Use
  Company Number: None

PATIENT
  Age: 15 Year
  Sex: Male
  Weight: 79 kg

DRUGS (1)
  1. DIGOXIN. [Suspect]
     Active Substance: DIGOXIN
     Route: 048
     Dates: start: 20161207, end: 20161214

REACTIONS (6)
  - Abdominal pain [None]
  - Constipation [None]
  - Toxicity to various agents [None]
  - Syncope [None]
  - Cardiac failure [None]
  - Vomiting [None]

NARRATIVE: CASE EVENT DATE: 20161207
